FAERS Safety Report 14546712 (Version 2)
Quarter: 2018Q1

REPORT INFORMATION
  Report Type: Spontaneous
  Country: RU (occurrence: RU)
  Receive Date: 20180219
  Receipt Date: 20180228
  Transmission Date: 20180509
  Serious: Yes (Hospitalization, Other)
  Sender: FDA-Public Use
  Company Number: RU-ASTRAZENECA-2018SE20034

PATIENT
  Age: 73 Year
  Sex: Male
  Weight: 85 kg

DRUGS (7)
  1. CARDIOMAGNYL [Concomitant]
     Active Substance: ASPIRIN\MAGNESIUM HYDROXIDE
  2. ATORVASTATIN [Concomitant]
     Active Substance: ATORVASTATIN
  3. SULFASALAZINE. [Concomitant]
     Active Substance: SULFASALAZINE
  4. BRILINTA [Suspect]
     Active Substance: TICAGRELOR
     Indication: ANGINA UNSTABLE
     Route: 048
     Dates: start: 201612, end: 20170915
  5. CONCOR [Concomitant]
     Active Substance: BISOPROLOL FUMARATE
  6. BRILINTA [Suspect]
     Active Substance: TICAGRELOR
     Indication: STENT PLACEMENT
     Route: 048
     Dates: start: 201612, end: 20170915
  7. BRILINTA [Suspect]
     Active Substance: TICAGRELOR
     Indication: MYOCARDIAL INFARCTION
     Route: 048
     Dates: start: 201612, end: 20170915

REACTIONS (4)
  - Ischaemic stroke [Recovered/Resolved with Sequelae]
  - Large intestine perforation [Unknown]
  - Haemoglobin decreased [Unknown]
  - Crohn^s disease [Recovered/Resolved]

NARRATIVE: CASE EVENT DATE: 20170908
